FAERS Safety Report 5015331-4 (Version None)
Quarter: 2006Q2

REPORT INFORMATION
  Report Type: 
  Country: None (occurrence: None)
  Receive Date: 20060601
  Receipt Date: 20060529
  Transmission Date: 20061013
  Serious: Yes (Hospitalization)
  Sender: FDA-Public Use
  Company Number: DE-AVENTIS-200611581DE

PATIENT
  Age: 52 Year
  Sex: Female

DRUGS (3)
  1. DOCETAXEL [Suspect]
     Indication: BREAST CANCER
     Route: 042
     Dates: start: 20060420, end: 20060420
  2. GEMCITABINE [Suspect]
     Indication: BREAST CANCER
     Route: 042
     Dates: start: 20060420, end: 20060420
  3. GEMCITABINE [Suspect]
     Route: 042
     Dates: start: 20060427, end: 20060427

REACTIONS (2)
  - EPISTAXIS [None]
  - HYPERTENSIVE CRISIS [None]
